FAERS Safety Report 6985775-X (Version None)
Quarter: 2010Q3

REPORT INFORMATION
  Report Type: 
  Country: None (occurrence: None)
  Receive Date: 20100915
  Receipt Date: 20100827
  Transmission Date: 20110219
  Serious: Yes (Hospitalization)
  Sender: FDA-Public Use
  Company Number: US-BAYER-201024604NA

PATIENT
  Age: 26 Year
  Sex: Female
  Weight: 82 kg

DRUGS (4)
  1. YASMIN [Suspect]
     Indication: PRODUCT USED FOR UNKNOWN INDICATION
     Route: 048
  2. YAZ [Suspect]
     Indication: PRODUCT USED FOR UNKNOWN INDICATION
     Dates: start: 20060101, end: 20071101
  3. MIGRAINE MEDICATION [Concomitant]
  4. NSAIDS [Concomitant]

REACTIONS (2)
  - BILIARY DYSKINESIA [None]
  - CHOLECYSTITIS CHRONIC [None]
